FAERS Safety Report 7884421-0 (Version None)
Quarter: 2011Q4

REPORT INFORMATION
  Report Type: 
  Country: None (occurrence: None)
  Receive Date: 20111102
  Receipt Date: 20110921
  Transmission Date: 20120403
  Serious: No
  Sender: FDA-Public Use
  Company Number: US-ASTRAZENECA-2011SE56643

PATIENT
  Age: 13018 Day
  Sex: Female

DRUGS (8)
  1. VITAMIN D [Concomitant]
  2. MAXZIDE [Concomitant]
  3. LISINOPRIL [Concomitant]
  4. CALCIUM 500 [Concomitant]
  5. TOPROL-XL [Concomitant]
  6. VANDETANIB [Suspect]
     Indication: THYROID CANCER
     Route: 048
  7. CHOLESTYRAMINE [Concomitant]
  8. LEVOTHYROXINE SODIUM [Concomitant]

REACTIONS (4)
  - OROPHARYNGEAL PAIN [None]
  - CRYING [None]
  - DEPRESSION [None]
  - FATIGUE [None]
